FAERS Safety Report 5740144-5 (Version None)
Quarter: 2008Q2

REPORT INFORMATION
  Report Type: 
  Country: None (occurrence: None)
  Receive Date: 20080516
  Receipt Date: 20080512
  Transmission Date: 20081010
  Serious: Yes (Hospitalization, Other)
  Sender: FDA-Public Use
  Company Number: US-BRISTOL-MYERS SQUIBB COMPANY-14187199

PATIENT
  Age: 52 Year
  Sex: Female
  Weight: 72 kg

DRUGS (6)
  1. BUSPAR [Suspect]
  2. WEIGHT SMART [Suspect]
     Indication: VITAMIN SUPPLEMENTATION
     Dosage: DOSAGE FORM = TAB
     Route: 048
     Dates: start: 20070301
  3. CHROMIUM PICOLINATE [Concomitant]
  4. CALCIUM [Concomitant]
  5. FERROUS GLUCONATE [Concomitant]
  6. ACETYLSALICYLIC ACID SRT [Concomitant]

REACTIONS (3)
  - BLOOD POTASSIUM DECREASED [None]
  - BLOOD SODIUM DECREASED [None]
  - DIZZINESS [None]
